FAERS Safety Report 17029372 (Version 3)
Quarter: 2020Q1

REPORT INFORMATION
  Report Type: Spontaneous
  Country: ES (occurrence: ES)
  Receive Date: 20191114
  Receipt Date: 20200121
  Transmission Date: 20200409
  Serious: Yes (Other)
  Sender: FDA-Public Use
  Company Number: ES-LUPIN PHARMACEUTICALS INC.-2019-07316

PATIENT
  Age: 36 Year
  Sex: Female

DRUGS (3)
  1. TOPIRAMATE. [Suspect]
     Active Substance: TOPIRAMATE
     Dosage: 50 MILLIGRAM, BID
     Route: 065
  2. ACETAZOLAMIDE. [Concomitant]
     Active Substance: ACETAZOLAMIDE
     Indication: IDIOPATHIC INTRACRANIAL HYPERTENSION
     Dosage: 250 MILLIGRAM, TID
     Route: 065
  3. TOPIRAMATE. [Suspect]
     Active Substance: TOPIRAMATE
     Indication: IDIOPATHIC INTRACRANIAL HYPERTENSION
     Dosage: 12.5 MILLIGRAM, QD, BASELINE DOSE
     Route: 065

REACTIONS (2)
  - Macular detachment [Recovered/Resolved]
  - Serous retinal detachment [Recovered/Resolved]
